FAERS Safety Report 7919273-3 (Version None)
Quarter: 2011Q4

REPORT INFORMATION
  Report Type: 
  Country: None (occurrence: None)
  Receive Date: 20111115
  Receipt Date: 20111115
  Transmission Date: 20120403
  Serious: Yes (Life-Threatening, Hospitalization, Disabling)
  Sender: FDA-Public Use
  Company Number: None

PATIENT
  Age: 60 Year
  Sex: Female
  Weight: 54.4316 kg

DRUGS (2)
  1. LISINOPRIL [Suspect]
     Indication: NEPHROPATHY
     Dosage: LISINOPRIL 10MG DAY ORALLY
     Route: 048
     Dates: start: 20090201, end: 20111001
  2. HYDROCHLOROTHIAZIDE [Suspect]
     Dosage: HCTZ 25MG DAY ORALLY
     Route: 048
     Dates: start: 20090201, end: 20111001

REACTIONS (1)
  - RENAL FAILURE CHRONIC [None]
